FAERS Safety Report 5407480-3 (Version None)
Quarter: 2007Q3

REPORT INFORMATION
  Report Type: 
  Country: None (occurrence: None)
  Receive Date: 20070807
  Receipt Date: 20070725
  Transmission Date: 20080115
  Serious: Yes (Other)
  Sender: FDA-Public Use
  Company Number: US-ELI_LILLY_AND_COMPANY-US200707005938

PATIENT
  Age: 57 Year
  Sex: Male
  Weight: 90.702 kg

DRUGS (7)
  1. STRATTERA [Suspect]
     Indication: DEPRESSION
     Dosage: 18 MG, DAILY (1/D)
     Route: 048
     Dates: start: 20070301, end: 20070101
  2. STRATTERA [Suspect]
     Dosage: 25 MG, DAILY (1/D)
     Route: 048
     Dates: start: 20070101, end: 20070101
  3. STRATTERA [Suspect]
     Dosage: 40 MG, DAILY (1/D)
     Route: 048
     Dates: start: 20070101, end: 20070716
  4. OXYCODONE HCL [Concomitant]
  5. ALEVE [Concomitant]
  6. ACIPHEX [Concomitant]
  7. CRESTOR [Concomitant]
     Indication: BLOOD CHOLESTEROL
     Dosage: 20 MG, UNK

REACTIONS (14)
  - APATHY [None]
  - ASTHENIA [None]
  - CHROMATURIA [None]
  - DEAFNESS [None]
  - FATIGUE [None]
  - INCREASED APPETITE [None]
  - INFLUENZA LIKE ILLNESS [None]
  - LETHARGY [None]
  - MUSCULAR WEAKNESS [None]
  - MUSCULOSKELETAL STIFFNESS [None]
  - SPINAL LAMINECTOMY [None]
  - TINNITUS [None]
  - URINARY HESITATION [None]
  - URINE ODOUR ABNORMAL [None]
